FAERS Safety Report 4360759-9 (Version None)
Quarter: 2004Q2

REPORT INFORMATION
  Report Type: 
  Country: None (occurrence: None)
  Receive Date: 20040519
  Receipt Date: 20040519
  Transmission Date: 20050107
  Serious: Yes (Other)
  Sender: FDA-Public Use
  Company Number: None

PATIENT
  Age: 18 Year
  Sex: Male

DRUGS (3)
  1. FLURBIPROFEN [Suspect]
     Indication: PAIN
     Dosage: 100 MG 1-2 Q 4-6 HRS PN
     Dates: start: 20030827
  2. . [Concomitant]
  3. . [Concomitant]

REACTIONS (4)
  - EYELID OEDEMA [None]
  - EYELIDS PRURITUS [None]
  - PRURITUS [None]
  - THROAT IRRITATION [None]
